FAERS Safety Report 10074205 (Version 1)
Quarter: 2014Q2

REPORT INFORMATION
  Report Type: Report from Study
  Country: TW (occurrence: TW)
  Receive Date: 20140412
  Receipt Date: 20140412
  Transmission Date: 20141212
  Serious: No
  Sender: FDA-Public Use
  Company Number: PHHY2014TW044155

PATIENT
  Age: 73 Year
  Sex: Male

DRUGS (26)
  1. AMN107 [Suspect]
     Dates: start: 20111219
  2. PROPRANOLOL [Concomitant]
     Indication: PALPITATIONS
     Dates: start: 20130415, end: 20130422
  3. PROPRANOLOL [Concomitant]
     Dates: start: 20121219, end: 20130102
  4. PROPRANOLOL [Concomitant]
     Dates: start: 20130708, end: 20131230
  5. PROPRANOLOL [Concomitant]
     Dates: start: 20130708, end: 20130930
  6. TAMLOSIN [Concomitant]
     Indication: BENIGN PROSTATIC HYPERPLASIA
     Dates: start: 20130123, end: 20130805
  7. ACETAMINOPHEN [Concomitant]
     Indication: UPPER RESPIRATORY TRACT INFECTION
     Dates: start: 20130926, end: 20130929
  8. AMLODIPINE [Concomitant]
     Indication: HYPERTENSION
     Dates: start: 20120926
  9. QUINAPRIL [Concomitant]
     Indication: HYPERTENSION
     Dates: start: 20120926, end: 20121218
  10. NORVASC [Concomitant]
     Indication: HYPERTENSION
     Dates: start: 20120808, end: 20120925
  11. XANAX [Concomitant]
     Indication: ANXIETY
     Dates: start: 20120307, end: 20120731
  12. XANAX [Concomitant]
     Dates: start: 20131023
  13. XANAX [Concomitant]
     Dosage: UNK
  14. HYDROCHLOROTHIAZIDE [Concomitant]
     Indication: PLEURAL EFFUSION
     Dates: start: 20140102
  15. HYDROCHLOROTHIAZIDE [Concomitant]
     Dates: start: 20130930, end: 20131025
  16. ATROPINE [Concomitant]
     Indication: ACUTE PULMONARY OEDEMA
     Dates: start: 20131216, end: 20131216
  17. ATROPINE [Concomitant]
     Dates: start: 20140103, end: 20140103
  18. LOSARTAN [Concomitant]
     Indication: HYPERTENSION
     Dates: start: 20130513, end: 20130902
  19. CALCIUM CHLORIDE [Concomitant]
     Indication: HYPOCALCAEMIA
     Dates: start: 20140103, end: 20140103
  20. ISOSORBIDE DINITRATE [Concomitant]
     Dates: start: 20131216, end: 20131217
  21. FUROSEMIDE [Concomitant]
     Indication: ACUTE PULMONARY OEDEMA
     Dates: start: 20131216, end: 20131220
  22. FUROSEMIDE [Concomitant]
     Dates: start: 20140105
  23. NIFEDIPINE [Concomitant]
     Indication: HYPERTENSION
     Dates: start: 20130913, end: 20131014
  24. ATENOLOL [Concomitant]
     Indication: HYPERTENSION
     Dates: start: 20131120, end: 20131218
  25. TAMSULOSIN HYDROCHLORIDE [Concomitant]
     Indication: BENIGN PROSTATIC HYPERPLASIA
     Dates: start: 20131120, end: 20131218
  26. CEFAZOLIN [Concomitant]
     Dates: start: 20140107, end: 20140107

REACTIONS (1)
  - Benign prostatic hyperplasia [Unknown]
